FAERS Safety Report 5220590-9 (Version None)
Quarter: 2007Q1

REPORT INFORMATION
  Report Type: 
  Country: None (occurrence: None)
  Receive Date: 20070126
  Receipt Date: 20070117
  Transmission Date: 20070707
  Serious: Yes (Hospitalization)
  Sender: FDA-Public Use
  Company Number: US-KINGPHARMUSA00001-K200700034

PATIENT

DRUGS (8)
  1. ALTACE [Suspect]
     Indication: HYPERTENSION
     Dosage: 10 MG, QD
     Route: 048
  2. ALTACE [Suspect]
     Dosage: 5 MG, QD
     Route: 048
  3. ASPIRIN [Concomitant]
     Indication: ANTIPLATELET THERAPY
     Dosage: 75 MG, UNK
  4. ATENOLOL [Concomitant]
     Indication: HEART RATE IRREGULAR
     Dosage: 25 MG, UNK
  5. FRUSEMIDE /00032601/ [Concomitant]
     Indication: OEDEMA
     Dosage: 40 MG, UNK
  6. ISOSORBIDE MONONITRATE [Concomitant]
     Indication: ANGINA PECTORIS
     Dosage: 40 MG, UNK
  7. NAPROXEN [Concomitant]
     Indication: PAIN
     Dosage: 500 MG, UNK
  8. SIMVASTATIN [Concomitant]
     Indication: PROPHYLAXIS

REACTIONS (4)
  - CHEST PAIN [None]
  - DIZZINESS [None]
  - HYPOTENSION [None]
  - RENAL IMPAIRMENT [None]
